FAERS Safety Report 12176750 (Version 3)
Quarter: 2016Q2

REPORT INFORMATION
  Report Type: Report from Study
  Country: CO (occurrence: CO)
  Receive Date: 20160315
  Receipt Date: 20160624
  Transmission Date: 20160815
  Serious: Yes (Hospitalization, Other)
  Sender: FDA-Public Use
  Company Number: CO-AMGEN-COLSL2016029498

PATIENT
  Age: 55 Year
  Sex: Male

DRUGS (1)
  1. MIMPARA [Suspect]
     Active Substance: CINACALCET HYDROCHLORIDE
     Indication: HYPERPARATHYROIDISM SECONDARY
     Dosage: UNK UNK, QD
     Route: 048
     Dates: start: 20150820

REACTIONS (4)
  - Pneumonia [Recovered/Resolved]
  - Coronary artery occlusion [Not Recovered/Not Resolved]
  - Ischaemia [Recovered/Resolved]
  - Viral infection [Unknown]
